FAERS Safety Report 23084621 (Version 1)
Quarter: 2023Q4

REPORT INFORMATION
  Report Type: Report from Study
  Country: BR (occurrence: BR)
  Receive Date: 20231019
  Receipt Date: 20231019
  Transmission Date: 20240110
  Serious: Yes (Life-Threatening, Hospitalization, Other)
  Sender: FDA-Public Use
  Company Number: BR-002147023-NVSC2022BR289089

PATIENT
  Age: 57 Year
  Sex: Female

DRUGS (3)
  1. RUXOLITINIB [Suspect]
     Active Substance: RUXOLITINIB
     Indication: Myelofibrosis
     Dosage: 5 MG, QD
     Route: 065
     Dates: start: 202208
  2. RUXOLITINIB [Suspect]
     Active Substance: RUXOLITINIB
     Dosage: UNK
     Route: 065
  3. ENTRESTO [Suspect]
     Active Substance: SACUBITRIL\VALSARTAN
     Indication: Product used for unknown indication
     Dosage: UNK
     Route: 065

REACTIONS (21)
  - Near death experience [Unknown]
  - Cyanosis [Recovering/Resolving]
  - Respiratory failure [Recovering/Resolving]
  - Weight decreased [Unknown]
  - Pulmonary oedema [Unknown]
  - Ascites [Recovering/Resolving]
  - Asthenia [Not Recovered/Not Resolved]
  - Insomnia [Unknown]
  - Asthma [Not Recovered/Not Resolved]
  - Dyspnoea [Recovering/Resolving]
  - Feeling abnormal [Not Recovered/Not Resolved]
  - Oxygen saturation abnormal [Not Recovered/Not Resolved]
  - Cardiac failure [Unknown]
  - Platelet count decreased [Unknown]
  - Platelet count abnormal [Not Recovered/Not Resolved]
  - Haemoglobin abnormal [Not Recovered/Not Resolved]
  - Anaemia [Not Recovered/Not Resolved]
  - Eye disorder [Unknown]
  - Contusion [Recovering/Resolving]
  - Visual impairment [Recovering/Resolving]
  - Inappropriate schedule of product administration [Unknown]

NARRATIVE: CASE EVENT DATE: 20230801
